FAERS Safety Report 8168515-0 (Version None)
Quarter: 2012Q1

REPORT INFORMATION
  Report Type: 
  Country: None (occurrence: None)
  Receive Date: 20120227
  Receipt Date: 20120227
  Transmission Date: 20120608
  Serious: Yes (Hospitalization)
  Sender: FDA-Public Use
  Company Number: None

PATIENT
  Age: 54 Year
  Sex: Female

DRUGS (7)
  1. LISINOPRIL [Suspect]
     Indication: CARDIOMYOPATHY
     Dosage: 15MG
     Route: 048
     Dates: start: 20100101, end: 20120223
  2. LISINOPRIL [Suspect]
     Indication: EJECTION FRACTION DECREASED
     Dosage: 15MG
     Route: 048
     Dates: start: 20100101, end: 20120223
  3. LISINOPRIL [Suspect]
     Indication: CARDIAC FAILURE CONGESTIVE
     Dosage: 15MG
     Route: 048
     Dates: start: 20100101, end: 20120223
  4. WARFARIN SODIUM [Concomitant]
  5. TORSEMIDE [Concomitant]
  6. LEVOTHYROXINE SODIUM [Concomitant]
  7. SERTRALINE HYDROCHLORIDE [Concomitant]

REACTIONS (2)
  - SWOLLEN TONGUE [None]
  - ANGIOEDEMA [None]
